FAERS Safety Report 25487980 (Version 1)
Quarter: 2025Q2

REPORT INFORMATION
  Report Type: Spontaneous
  Country: US (occurrence: US)
  Receive Date: 20250627
  Receipt Date: 20250627
  Transmission Date: 20250717
  Serious: No
  Sender: CHATTEM
  Company Number: US-OPELLA-2025OHG019089

PATIENT
  Age: 56 Year
  Sex: Female

DRUGS (17)
  1. LEVOCETIRIZINE [Suspect]
     Active Substance: LEVOCETIRIZINE
     Indication: Erythema dyschromicum perstans
     Route: 048
  2. VALACYCLOVIR [Concomitant]
     Active Substance: VALACYCLOVIR HYDROCHLORIDE
     Indication: Erythema multiforme
     Route: 048
  3. VALACYCLOVIR [Concomitant]
     Active Substance: VALACYCLOVIR HYDROCHLORIDE
     Route: 048
  4. HYDROQUINONE [Concomitant]
     Active Substance: HYDROQUINONE
     Indication: Post inflammatory pigmentation change
     Route: 065
  5. HYDROQUINONE [Concomitant]
     Active Substance: HYDROQUINONE
     Indication: Erythema multiforme
     Route: 065
  6. kojic acid [Concomitant]
     Indication: Post inflammatory pigmentation change
     Route: 065
  7. TRETINOIN [Concomitant]
     Active Substance: TRETINOIN
     Indication: Erythema multiforme
     Route: 061
  8. TRETINOIN [Concomitant]
     Active Substance: TRETINOIN
     Indication: Erythema dyschromicum perstans
  9. FLUOCINOLONE ACETONIDE [Concomitant]
     Active Substance: FLUOCINOLONE ACETONIDE
     Indication: Erythema multiforme
     Route: 065
  10. FLUOCINOLONE ACETONIDE [Concomitant]
     Active Substance: FLUOCINOLONE ACETONIDE
     Indication: Erythema dyschromicum perstans
  11. DAPSONE [Concomitant]
     Active Substance: DAPSONE
     Indication: Erythema dyschromicum perstans
     Route: 061
  12. DAPSONE [Concomitant]
     Active Substance: DAPSONE
     Indication: Erythema multiforme
  13. FLUOCINONIDE [Concomitant]
     Active Substance: FLUOCINONIDE
     Indication: Erythema multiforme
     Dosage: ON FOREARMS FOR ONE WEEK
     Route: 065
  14. FLUOCINONIDE [Concomitant]
     Active Substance: FLUOCINONIDE
     Indication: Erythema dyschromicum perstans
  15. TRIAMCINOLONE ACETONIDE [Concomitant]
     Active Substance: TRIAMCINOLONE ACETONIDE
     Indication: Erythema multiforme
     Dosage: ON FOREARMS FOR ONE WEEK
     Route: 065
  16. TRIAMCINOLONE ACETONIDE [Concomitant]
     Active Substance: TRIAMCINOLONE ACETONIDE
     Indication: Erythema dyschromicum perstans
  17. TETRACYCLINE [Concomitant]
     Active Substance: TETRACYCLINE
     Indication: Erythema dyschromicum perstans
     Dosage: ON FOREARMS FOR ONE WEEK
     Route: 048

REACTIONS (2)
  - Off label use [Unknown]
  - No adverse event [Unknown]
